FAERS Safety Report 6841242-5 (Version None)
Quarter: 2010Q3

REPORT INFORMATION
  Report Type: 
  Country: None (occurrence: None)
  Receive Date: 20100714
  Receipt Date: 20070701
  Transmission Date: 20110219
  Serious: No
  Sender: FDA-Public Use
  Company Number: US-PFIZER INC-2007055121

PATIENT
  Age: 60 Year
  Sex: Male

DRUGS (6)
  1. CHANTIX [Suspect]
     Indication: SMOKING CESSATION THERAPY
     Dates: start: 20070601
  2. LISINOPRIL [Concomitant]
  3. LISINOPRIL AND HYDROCHLOROTHIAZIDE [Concomitant]
  4. NEURONTIN [Concomitant]
  5. ACETYLSALICYLIC ACID [Concomitant]
  6. PRILOSEC [Concomitant]
     Indication: DYSPEPSIA

REACTIONS (2)
  - CONSTIPATION [None]
  - DIARRHOEA [None]
